FAERS Safety Report 8493541-1 (Version None)
Quarter: 2012Q3

REPORT INFORMATION
  Report Type: 
  Country: None (occurrence: None)
  Receive Date: 20120706
  Receipt Date: 20120703
  Transmission Date: 20120928
  Serious: No
  Sender: FDA-Public Use
  Company Number: US-B.I. PHARMACEUTICALS,INC./RIDGEFIELD-2011-BP-17284BP

PATIENT
  Sex: Female

DRUGS (13)
  1. NASONEX [Concomitant]
     Indication: SEASONAL ALLERGY
     Route: 045
     Dates: start: 20060101
  2. MULTAQ [Concomitant]
     Indication: ATRIAL FIBRILLATION
     Dosage: 800 MG
     Route: 048
     Dates: start: 20110201
  3. ASTEPRO [Concomitant]
     Indication: SEASONAL ALLERGY
     Route: 045
     Dates: start: 20101001
  4. PRADAXA [Suspect]
     Indication: ATRIAL FIBRILLATION
     Dosage: 300 MG
     Route: 048
     Dates: start: 20110101
  5. NORVASC [Concomitant]
     Indication: HYPERTENSION
     Dosage: 10 MG
     Route: 048
     Dates: start: 19900101
  6. SINGULAIR [Concomitant]
     Indication: SEASONAL ALLERGY
     Route: 048
     Dates: start: 20101001
  7. TOPROL-XL [Concomitant]
     Indication: HYPERTENSION
     Dosage: 100 MG
     Route: 048
     Dates: start: 19900101
  8. VYTORIN [Concomitant]
     Indication: BLOOD CHOLESTEROL INCREASED
     Route: 048
     Dates: start: 19900101
  9. ASMANEX TWISTHALER [Concomitant]
     Indication: ASTHMA
     Route: 055
     Dates: start: 20100101
  10. DIOVAN [Concomitant]
     Indication: HYPERTENSION
     Dosage: 320 MG
     Route: 048
     Dates: start: 19900101
  11. TRAZODONE HCL [Concomitant]
     Indication: INSOMNIA
     Dosage: 75 MG
     Route: 048
     Dates: start: 19900101
  12. OXCARBAZEPINE [Concomitant]
     Indication: CONVULSION
     Dosage: 600 MG
     Route: 048
     Dates: start: 19880601
  13. MULTI-VITAMINS [Concomitant]
     Indication: SUPPLEMENTATION THERAPY
     Route: 048
     Dates: start: 19930101

REACTIONS (3)
  - RASH MACULAR [None]
  - CONTUSION [None]
  - BLOOD PRESSURE INCREASED [None]
